FAERS Safety Report 4700747-3 (Version None)
Quarter: 2005Q2

REPORT INFORMATION
  Report Type: 
  Country: None (occurrence: None)
  Receive Date: 20050627
  Receipt Date: 20050609
  Transmission Date: 20051028
  Serious: Yes (Hospitalization)
  Sender: FDA-Public Use
  Company Number: 2005FR-00023

PATIENT
  Age: 77 Year
  Sex: Female

DRUGS (1)
  1. ASPIRIN [Suspect]
     Dosage: 75 MG, ORAL
     Route: 048
     Dates: start: 19950101, end: 20050513

REACTIONS (1)
  - DUODENAL ULCER [None]
